FAERS Safety Report 8011835-0 (Version None)
Quarter: 2011Q4

REPORT INFORMATION
  Report Type: 
  Country: None (occurrence: None)
  Receive Date: 20111228
  Receipt Date: 20111222
  Transmission Date: 20120403
  Serious: Yes (Other)
  Sender: FDA-Public Use
  Company Number: US-ABBOTT-11P-163-0886047-00

PATIENT
  Age: 39 Year
  Sex: Female

DRUGS (1)
  1. HUMIRA [Suspect]
     Indication: PSORIASIS

REACTIONS (3)
  - TRANSIENT ISCHAEMIC ATTACK [None]
  - GRIP STRENGTH DECREASED [None]
  - HYPOAESTHESIA ORAL [None]
